FAERS Safety Report 7825220-5 (Version None)
Quarter: 2011Q4

REPORT INFORMATION
  Report Type: 
  Country: None (occurrence: None)
  Receive Date: 20111019
  Receipt Date: 20111014
  Transmission Date: 20120403
  Serious: Yes (Death)
  Sender: FDA-Public Use
  Company Number: TN-SANOFI-AVENTIS-2011SA068065

PATIENT
  Age: 80 Year
  Sex: Female

DRUGS (8)
  1. PLAVIX [Suspect]
     Route: 048
     Dates: start: 20110617, end: 20111002
  2. ASPEGIC 325 [Concomitant]
     Route: 048
     Dates: end: 20111002
  3. BISOPROLOL [Concomitant]
     Route: 048
     Dates: end: 20111002
  4. ATORVASTATIN [Concomitant]
     Route: 048
     Dates: end: 20111002
  5. CORVASAL [Concomitant]
     Route: 048
     Dates: end: 20111002
  6. INSULIN [Concomitant]
     Route: 058
     Dates: end: 20111002
  7. IRBESARTAN [Concomitant]
     Route: 048
     Dates: end: 20111002
  8. PLAVIX [Suspect]
     Route: 048
     Dates: start: 20110617, end: 20111002

REACTIONS (2)
  - CHOLELITHIASIS [None]
  - GENERAL PHYSICAL HEALTH DETERIORATION [None]
